FAERS Safety Report 16019692 (Version 2)
Quarter: 2019Q2

REPORT INFORMATION
  Report Type: Spontaneous
  Country: US (occurrence: US)
  Receive Date: 20190228
  Receipt Date: 20190506
  Transmission Date: 20190711
  Serious: Yes (Other)
  Sender: FDA-Public Use
  Company Number: US-009507513-1902USA010821

PATIENT
  Age: 35 Year
  Sex: Male

DRUGS (1)
  1. KEYTRUDA [Suspect]
     Active Substance: PEMBROLIZUMAB
     Indication: MALIGNANT NEOPLASM OF THYMUS
     Dosage: UNK
     Route: 042
     Dates: start: 201805, end: 201901

REACTIONS (4)
  - Immune-mediated adverse reaction [Not Recovered/Not Resolved]
  - Therapeutic product effective for unapproved indication [Unknown]
  - Product use in unapproved indication [Unknown]
  - Glossitis [Not Recovered/Not Resolved]

NARRATIVE: CASE EVENT DATE: 201805
